FAERS Safety Report 19490241 (Version 2)
Quarter: 2021Q3

REPORT INFORMATION
  Report Type: Spontaneous
  Country: AL (occurrence: AL)
  Receive Date: 20210705
  Receipt Date: 20210706
  Transmission Date: 20211014
  Serious: Yes (Hospitalization, Other)
  Sender: FDA-Public Use
  Company Number: AL-JNJFOC-20210703916

PATIENT
  Age: 71 Year
  Sex: Male

DRUGS (6)
  1. WARFARINE [Concomitant]
     Active Substance: WARFARIN
     Dosage: 4 MG, QD
  2. CORDARONE [Concomitant]
     Active Substance: AMIODARONE HYDROCHLORIDE
     Dosage: 200 MG, QD
  3. XARELTO [Suspect]
     Active Substance: RIVAROXABAN
     Indication: VENOUS OCCLUSION
     Dosage: 20 MG, QD
     Route: 048
  4. ATORVASTATINE [ATORVASTATIN] [Concomitant]
     Active Substance: ATORVASTATIN
     Dosage: 20 MG, QD
  5. SIOFOR [Concomitant]
     Active Substance: METFORMIN HYDROCHLORIDE
     Dosage: 1700 MG, QD
  6. OLMESARTAN [Concomitant]
     Active Substance: OLMESARTAN
     Dosage: 40 MG, QD

REACTIONS (3)
  - Speech disorder [Unknown]
  - Hemiparesis [Unknown]
  - Aphasia [Unknown]
